FAERS Safety Report 9377922 (Version 1)
Quarter: 2013Q2

REPORT INFORMATION
  Report Type: Spontaneous
  Country: FR (occurrence: None)
  Receive Date: 20130625
  Receipt Date: 20130625
  Transmission Date: 20140414
  Serious: Yes (Hospitalization)
  Sender: FDA-Public Use
  Company Number: LEVE20130005

PATIENT
  Age: 75 Year
  Sex: Female

DRUGS (5)
  1. LEVETIRACETAM [Suspect]
     Indication: EPILEPSY
  2. PAROXETINE (PAROXETINE) (PAROXETINE) [Concomitant]
  3. VALPROATE (VALPROATE SODIUM) (VALPROATE SODIUM) [Concomitant]
  4. ALIMENAZINE (ALIMENAZINE) (ALIMENAZINE) [Concomitant]
  5. TRINIRIN (GLYCERYL TRINITRATE) (POULTICE OR PATCH) (GLYCERYL TRINITRATE) [Concomitant]

REACTIONS (1)
  - Hypoglycaemia [None]
